FAERS Safety Report 5346686-9 (Version None)
Quarter: 2007Q2

REPORT INFORMATION
  Report Type: 
  Country: None (occurrence: None)
  Receive Date: 20070605
  Receipt Date: 20070524
  Transmission Date: 20071010
  Serious: Yes (Other)
  Sender: FDA-Public Use
  Company Number: US-PFIZER INC-2007042606

PATIENT
  Sex: Male
  Weight: 93.9 kg

DRUGS (2)
  1. LYRICA [Suspect]
     Indication: EPILEPSY
  2. ALL OTHER THERAPEUTIC PRODUCTS [Concomitant]
     Indication: HEADACHE

REACTIONS (2)
  - DEEP VEIN THROMBOSIS [None]
  - PULMONARY EMBOLISM [None]
